FAERS Safety Report 11947732 (Version 1)
Quarter: 2016Q1

REPORT INFORMATION
  Report Type: Spontaneous
  Country: US (occurrence: US)
  Receive Date: 20160125
  Receipt Date: 20160125
  Transmission Date: 20160526
  Serious: No
  Sender: FDA-Public Use
  Company Number: US-BAUSCH-BL-2015-003229

PATIENT
  Age: 73 Year
  Sex: Male
  Weight: 74.91 kg

DRUGS (2)
  1. ERTACZO [Suspect]
     Active Substance: SERTACONAZOLE NITRATE
     Indication: TINEA CRURIS
     Route: 061
     Dates: start: 201502, end: 201502
  2. METOPROLOL. [Concomitant]
     Active Substance: METOPROLOL
     Indication: PRODUCT USED FOR UNKNOWN INDICATION

REACTIONS (1)
  - Application site inflammation [Recovering/Resolving]

NARRATIVE: CASE EVENT DATE: 201502
